FAERS Safety Report 5128253-5 (Version None)
Quarter: 2006Q4

REPORT INFORMATION
  Report Type: 
  Country: None (occurrence: None)
  Receive Date: 20061011
  Receipt Date: 20060920
  Transmission Date: 20070319
  Serious: Yes (Other)
  Sender: FDA-Public Use
  Company Number: US200609005036

PATIENT
  Age: 71 Year
  Sex: Female

DRUGS (3)
  1. FORTEO [Suspect]
     Indication: OSTEOPOROSIS
     Dosage: UNK, UNK, UNK
     Dates: start: 20050301
  2. LAMICTAL [Concomitant]
  3. FORTEO PEN 9250MCG/ML) (FORTEO PEN 250MCG/ML 3ML)) PEN, DISPOSABLE [Concomitant]

REACTIONS (7)
  - BALANCE DISORDER [None]
  - CONTUSION [None]
  - CONVULSION [None]
  - DISORIENTATION [None]
  - FALL [None]
  - PELVIC FRACTURE [None]
  - PHARMACEUTICAL PRODUCT COMPLAINT [None]
